FAERS Safety Report 25221491 (Version 3)
Quarter: 2025Q2

REPORT INFORMATION
  Report Type: Spontaneous
  Country: US (occurrence: US)
  Receive Date: 20250421
  Receipt Date: 20250510
  Transmission Date: 20250716
  Serious: No
  Sender: SANOFI AVENTIS
  Company Number: US-SA-2025SA110416

PATIENT
  Age: 9 Year
  Sex: Female
  Weight: 44.4 kg

DRUGS (15)
  1. DUPIXENT [Suspect]
     Active Substance: DUPILUMAB
     Indication: Asthma
     Dosage: 200 MG, QOW
     Route: 058
  2. GAMMAGARD [Suspect]
     Active Substance: HUMAN IMMUNOGLOBULIN G
  3. LIDOCAINE [Concomitant]
     Active Substance: LIDOCAINE
  4. FLONASE ALLERGY RELIEF [Concomitant]
     Active Substance: FLUTICASONE PROPIONATE
  5. SPIRIVA RESPIMAT [Concomitant]
     Active Substance: TIOTROPIUM BROMIDE
  6. RIZATRIPTAN [Concomitant]
     Active Substance: RIZATRIPTAN
  7. EPINEPHRINE [Concomitant]
     Active Substance: EPINEPHRINE
  8. TOPAMAX [Concomitant]
     Active Substance: TOPIRAMATE
  9. ACETAMINOPHEN [Concomitant]
     Active Substance: ACETAMINOPHEN
  10. DIPHENHYDRAMINE [Concomitant]
     Active Substance: DIPHENHYDRAMINE
  11. ALBUTEROL SULFATE [Concomitant]
     Active Substance: ALBUTEROL SULFATE
  12. TRIAMCINOLONE ACETONIDE [Concomitant]
     Active Substance: TRIAMCINOLONE ACETONIDE
  13. PULMICORT FLEXHALER [Concomitant]
     Active Substance: BUDESONIDE
  14. MELATONIN [Concomitant]
     Active Substance: MELATONIN
  15. LEVOCETIRIZINE DIHYDROCHLORIDE [Concomitant]
     Active Substance: LEVOCETIRIZINE DIHYDROCHLORIDE

REACTIONS (6)
  - Abdominal pain upper [Unknown]
  - Injection site inflammation [Unknown]
  - Injection site erythema [Unknown]
  - Injection site rash [Unknown]
  - Injection site pain [Unknown]
  - Drug hypersensitivity [Unknown]

NARRATIVE: CASE EVENT DATE: 20250101
